FAERS Safety Report 5134789-3 (Version None)
Quarter: 2006Q4

REPORT INFORMATION
  Report Type: 
  Country: None (occurrence: None)
  Receive Date: 20061025
  Receipt Date: 20061019
  Transmission Date: 20070319
  Serious: Yes (Death)
  Sender: FDA-Public Use
  Company Number: TR-MERCK-0610USA12019

PATIENT
  Age: 11 Day
  Sex: Female

DRUGS (3)
  1. DECADRON [Suspect]
     Indication: LYMPHOHISTIOCYTOSIS
     Route: 048
  2. ETOPOSIDE [Suspect]
     Indication: LYMPHOHISTIOCYTOSIS
     Route: 065
  3. CYCLOSPORINE [Suspect]
     Indication: LYMPHOHISTIOCYTOSIS
     Route: 065

REACTIONS (2)
  - BONE MARROW FAILURE [None]
  - OPPORTUNISTIC INFECTION [None]
